FAERS Safety Report 8777128 (Version 1)
Quarter: 2012Q4

REPORT INFORMATION
  Report Type: 
  Country: TR (occurrence: TR)
  Receive Date: 20120911
  Receipt Date: 20120911
  Transmission Date: 20130627
  Serious: Yes (Other)
  Sender: FDA-Public Use
  Company Number: TR-US-EMD SERONO, INC.-7158735

PATIENT
  Age: 33 Year
  Sex: Female

DRUGS (2)
  1. CLOMIPHENE CITRATE [Suspect]
     Indication: OVULATION INDUCTION
  2. HORMONE CONSTITUENTS [Suspect]
     Indication: OVULATION INDUCTION

REACTIONS (3)
  - Heterotopic pregnancy [Recovered/Resolved]
  - Abortion [Recovered/Resolved]
  - Adnexa uteri cyst [Unknown]
